FAERS Safety Report 8624337 (Version 3)
Quarter: 2013Q1

REPORT INFORMATION
  Report Type: Spontaneous
  Country: US (occurrence: US)
  Receive Date: 20120620
  Receipt Date: 20130102
  Transmission Date: 20140127
  Serious: Yes (Other)
  Sender: FDA-Public Use
  Company Number: US-VERTEX PHARMACEUTICALS INC.-AE-2012-002524

PATIENT
  Age: 53 None
  Sex: Female
  Weight: 114 kg

DRUGS (15)
  1. INCIVEK [Suspect]
     Indication: HEPATITIS C
     Dosage: 750 MG, TID
     Route: 048
     Dates: start: 20120212, end: 20120506
  2. RIBAVIRIN [Suspect]
     Indication: HEPATITIS C
     Dosage: 600 MG, UNK
     Route: 048
     Dates: start: 20120212, end: 20120404
  3. RIBAVIRIN [Suspect]
     Dosage: 2 PILLS IN AM, 2 PILLS IN PM
     Route: 048
     Dates: start: 20120416, end: 20120520
  4. PEGASYS [Suspect]
     Indication: HEPATITIS C
     Dosage: 180 ?G, QW
     Route: 058
     Dates: start: 20120212, end: 20120520
  5. BYETTA [Concomitant]
     Indication: DIABETES MELLITUS
     Dosage: 10 MG, UNK
     Route: 058
  6. ALPRAZOLAM [Concomitant]
     Indication: ANXIETY
     Dosage: 1 MG, UNK
     Route: 048
  7. LAMICTAL [Concomitant]
     Route: 048
  8. LEXAPRO [Concomitant]
     Indication: DEPRESSION
     Route: 048
  9. LISINOPRIL [Concomitant]
     Indication: RENAL HYPERTENSION
     Route: 048
  10. LISINOPRIL [Concomitant]
     Indication: DIABETES MELLITUS
  11. PRANDIN                            /00882701/ [Concomitant]
     Indication: DIABETES MELLITUS
     Route: 048
  12. SYNTHROID [Concomitant]
     Indication: HYPOTHYROIDISM
     Route: 048
  13. MULTIVITAMIN                       /00097801/ [Concomitant]
     Route: 048
  14. AMBIEN [Concomitant]
     Indication: INSOMNIA
     Route: 048
  15. TRAMADOL [Concomitant]
     Indication: PAIN
     Route: 048

REACTIONS (17)
  - Anaemia [Recovered/Resolved]
  - Amnesia [Not Recovered/Not Resolved]
  - Photophobia [Not Recovered/Not Resolved]
  - Pyrexia [Not Recovered/Not Resolved]
  - Weight decreased [Not Recovered/Not Resolved]
  - Agitation [Not Recovered/Not Resolved]
  - Decreased appetite [Not Recovered/Not Resolved]
  - Arthralgia [Not Recovered/Not Resolved]
  - Myalgia [Not Recovered/Not Resolved]
  - Pain [Not Recovered/Not Resolved]
  - Back pain [Not Recovered/Not Resolved]
  - Pain in extremity [Not Recovered/Not Resolved]
  - Nightmare [Not Recovered/Not Resolved]
  - Feeling abnormal [Not Recovered/Not Resolved]
  - Irritability [Not Recovered/Not Resolved]
  - Rash generalised [Not Recovered/Not Resolved]
  - Drug ineffective [Unknown]
